FAERS Safety Report 8572163-8 (Version None)
Quarter: 2012Q3

REPORT INFORMATION
  Report Type: 
  Country: None (occurrence: None)
  Receive Date: 20120806
  Receipt Date: 20120802
  Transmission Date: 20120928
  Serious: Yes (Other)
  Sender: FDA-Public Use
  Company Number: CN-PFIZER INC-2012187495

PATIENT
  Age: 28 Year
  Sex: Female

DRUGS (1)
  1. CEFOPERAZONE SODIUM [Suspect]
     Indication: PNEUMONIA
     Dosage: 2 G, 1X/DAY

REACTIONS (1)
  - UPPER GASTROINTESTINAL HAEMORRHAGE [None]
